FAERS Safety Report 9237612 (Version 1)
Quarter: 2013Q2

REPORT INFORMATION
  Report Type: Spontaneous
  Country: US (occurrence: US)
  Receive Date: 20130418
  Receipt Date: 20130418
  Transmission Date: 20140414
  Serious: No
  Sender: FDA-Public Use
  Company Number: US-009507513-1304USA007812

PATIENT
  Age: 84 Year
  Sex: Male

DRUGS (3)
  1. NASONEX [Suspect]
     Indication: NASAL CONGESTION
     Dosage: 2 PUFFS IN EACH NOSTRIL TAKEN TWICE DAILY
     Route: 045
     Dates: start: 2012, end: 201304
  2. ADVAIR [Concomitant]
  3. PRINIVIL [Concomitant]

REACTIONS (1)
  - Rhinitis [Unknown]
